FAERS Safety Report 10768110 (Version 1)
Quarter: 2015Q1

REPORT INFORMATION
  Report Type: Spontaneous
  Country: US (occurrence: US)
  Receive Date: 20150205
  Receipt Date: 20150205
  Transmission Date: 20150721
  Serious: Yes (Other)
  Sender: FDA-Public Use
  Company Number: US-FRI-1000074171

PATIENT
  Sex: Female

DRUGS (3)
  1. ARMOUR THYROID [Suspect]
     Active Substance: THYROID, PORCINE\THYROID, UNSPECIFIED
     Dosage: 60 MG
     Route: 048
  2. ARMOUR THYROID [Suspect]
     Active Substance: THYROID, PORCINE\THYROID, UNSPECIFIED
     Dosage: 45 MG
     Route: 048
  3. ARMOUR THYROID [Suspect]
     Active Substance: THYROID, PORCINE\THYROID, UNSPECIFIED
     Dosage: 30 MG
     Route: 048

REACTIONS (14)
  - Fatigue [Unknown]
  - Body temperature decreased [Unknown]
  - Iodine allergy [Unknown]
  - Drug ineffective [Unknown]
  - Throat tightness [Unknown]
  - Intentional product misuse [Unknown]
  - Cardiac arrest [Unknown]
  - Feeling abnormal [Unknown]
  - Dizziness [Unknown]
  - Dyspnoea [Unknown]
  - Haemorrhage [Unknown]
  - Lethargy [Unknown]
  - Tremor [Unknown]
  - Asthenia [Unknown]
